FAERS Safety Report 20500135 (Version 1)
Quarter: 2022Q1

REPORT INFORMATION
  Report Type: Report from Study
  Country: MX (occurrence: MX)
  Receive Date: 20220222
  Receipt Date: 20220222
  Transmission Date: 20220423
  Serious: Yes (Disabling)
  Sender: FDA-Public Use
  Company Number: MX-SA-2020SA050225

PATIENT

DRUGS (20)
  1. INSULIN GLARGINE\LIXISENATIDE [Suspect]
     Active Substance: INSULIN GLARGINE\LIXISENATIDE
     Indication: Type 2 diabetes mellitus
     Dosage: 20 IU, QD
     Dates: start: 20190919
  2. INSULIN GLARGINE\LIXISENATIDE [Suspect]
     Active Substance: INSULIN GLARGINE\LIXISENATIDE
     Dosage: UNK (DOSE INCREASED )
     Dates: start: 20200224
  3. INSULIN GLARGINE\LIXISENATIDE [Suspect]
     Active Substance: INSULIN GLARGINE\LIXISENATIDE
     Dosage: 16 IU, QD (CORRESPONDING TO 16 UI OF INSULIN GLARGINE AND 8 MCG/ML OF LIXISENATIDE)
     Dates: start: 20200228, end: 20210621
  4. AMLODIPINE BESYLATE\HYDROCHLOROTHIAZIDE\OLMESARTAN MEDOXOMIL [Concomitant]
     Active Substance: AMLODIPINE BESYLATE\HYDROCHLOROTHIAZIDE\OLMESARTAN MEDOXOMIL
     Indication: Essential hypertension
     Dosage: 40/5/12.5 MG  BID
     Route: 048
     Dates: start: 20190919, end: 20191018
  5. GABAPENTIN [Concomitant]
     Active Substance: GABAPENTIN
     Indication: Neuropathy peripheral
     Dosage: 300 MG, BID
     Route: 048
     Dates: start: 20190919, end: 20200224
  6. GLIMEPIRIDE [Concomitant]
     Active Substance: GLIMEPIRIDE
     Indication: Type 2 diabetes mellitus
     Dosage: 4 MG, BID
     Route: 048
     Dates: start: 20191018, end: 20191226
  7. TELMISARTAN HYDROCHLOROTHIAZIDE CHEMO IBERICA [Concomitant]
     Indication: Essential hypertension
     Dosage: 80/12.5 MG, QD
     Route: 048
     Dates: start: 20191018
  8. ZYPREXA ZYDIS [Concomitant]
     Active Substance: OLANZAPINE
     Indication: Insomnia
     Dosage: 5 MG, QD
     Route: 048
     Dates: start: 20200224, end: 20200525
  9. AMLODIPINO ACCORD [Concomitant]
     Indication: Essential hypertension
     Dosage: 5 MG, QD
     Route: 048
     Dates: start: 20191018
  10. PREGABALIN [Concomitant]
     Active Substance: PREGABALIN
     Indication: Cervical spinal stenosis
     Dosage: 150 MG, BID
     Route: 048
     Dates: start: 20200224
  11. PREGABALIN [Concomitant]
     Active Substance: PREGABALIN
     Indication: Lumbar spinal stenosis
  12. BEZAFIBRATO [Concomitant]
     Indication: Type V hyperlipidaemia
     Dosage: 200 MG, QD
     Route: 048
     Dates: start: 20200324, end: 20200625
  13. ATORVASTATIN CALCIUM [Concomitant]
     Active Substance: ATORVASTATIN CALCIUM
     Indication: Type V hyperlipidaemia
     Dosage: 40 MG, QD
     Route: 048
     Dates: start: 20200324
  14. METFORMIN HYDROCHLORIDE [Concomitant]
     Active Substance: METFORMIN HYDROCHLORIDE
     Indication: Type 2 diabetes mellitus
     Dosage: 500 MG, QD
     Route: 048
     Dates: start: 20200324
  15. VALERIAN ROOT EXTRACT [Concomitant]
     Indication: Insomnia
     Dosage: 475 MG, TID
     Route: 048
     Dates: start: 20200525
  16. TRAMADOL HYDROCHLORIDE [Concomitant]
     Active Substance: TRAMADOL HYDROCHLORIDE
     Indication: Cervical spinal stenosis
     Dosage: 25 MG, TID
     Route: 048
     Dates: start: 20201002
  17. ACETAMINOPHEN [Concomitant]
     Active Substance: ACETAMINOPHEN
     Indication: Lumbar spinal stenosis
     Dosage: 500 MG, TID
     Route: 048
     Dates: start: 20201002
  18. SENOSIDOS AB [Concomitant]
     Indication: Constipation
     Dosage: 187 MG, QD
     Route: 048
     Dates: start: 20201002
  19. VALERIAN ROOT [VALERIANA OFFICINALIS] [Concomitant]
  20. OLANZAPINE [Concomitant]
     Active Substance: OLANZAPINE

REACTIONS (3)
  - Lumbar spinal stenosis [Not Recovered/Not Resolved]
  - Cervical spinal stenosis [Not Recovered/Not Resolved]
  - Insomnia [Recovered/Resolved]

NARRATIVE: CASE EVENT DATE: 20200223
